FAERS Safety Report 9310383 (Version 3)
Quarter: 2014Q2

REPORT INFORMATION
  Report Type: Report from Study
  Country: US (occurrence: US)
  Receive Date: 20130527
  Receipt Date: 20140523
  Transmission Date: 20141212
  Serious: Yes (Hospitalization)
  Sender: FDA-Public Use
  Company Number: US-BRISTOL-MYERS SQUIBB COMPANY-18935791

PATIENT
  Age: 39 Year
  Sex: Male
  Weight: 75.4 kg

DRUGS (4)
  1. IPILIMUMAB [Suspect]
     Indication: MALIGNANT MELANOMA
     Dosage: LAST DOSE: 13MAY2013?739 MG
     Route: 042
     Dates: start: 20130311
  2. MULTIVITAMIN [Concomitant]
  3. TYLENOL [Concomitant]
  4. ADVIL [Concomitant]
     Indication: HEADACHE

REACTIONS (3)
  - Atrial fibrillation [Recovered/Resolved with Sequelae]
  - Sinus tachycardia [Recovered/Resolved with Sequelae]
  - Pyrexia [Recovered/Resolved with Sequelae]
